FAERS Safety Report 5087630-1 (Version None)
Quarter: 2006Q3

REPORT INFORMATION
  Report Type: 
  Country: None (occurrence: None)
  Receive Date: 20060823
  Receipt Date: 20060823
  Transmission Date: 20061208
  Serious: Yes (Other)
  Sender: FDA-Public Use
  Company Number: None

PATIENT
  Sex: Male
  Weight: 36.2 kg

DRUGS (3)
  1. CLINDAMYCIN [Suspect]
     Indication: OSTEOARTHRITIS
     Dosage: 350MG    EVERY 8 HOURS    IV BOLUS
     Route: 040
     Dates: start: 20060808, end: 20060816
  2. IBUPROFEN [Concomitant]
  3. ACETAMINOPHEN [Concomitant]

REACTIONS (1)
  - DIARRHOEA [None]
